FAERS Safety Report 9890811 (Version 1)
Quarter: 2014Q1

REPORT INFORMATION
  Report Type: Spontaneous
  Country: AU (occurrence: None)
  Receive Date: 20140210
  Receipt Date: 20140210
  Transmission Date: 20141002
  Serious: Yes (Other)
  Sender: FDA-Public Use
  Company Number: 2014/005

PATIENT
  Age: 81 Year
  Sex: Male

DRUGS (2)
  1. GRANISETRON [Suspect]
     Indication: VOMITING
  2. 5-AZACYTIDINE [Suspect]
     Indication: MYELODYSPLASTIC SYNDROME

REACTIONS (2)
  - Colitis ischaemic [None]
  - Pneumonia [None]
